FAERS Safety Report 5933236-9 (Version None)
Quarter: 2008Q4

REPORT INFORMATION
  Report Type: 
  Country: None (occurrence: None)
  Receive Date: 20081028
  Receipt Date: 20081016
  Transmission Date: 20090506
  Serious: Yes (Other)
  Sender: FDA-Public Use
  Company Number: US-PFIZER INC-2008074632

PATIENT
  Sex: Female

DRUGS (6)
  1. LYRICA [Suspect]
     Indication: PAIN IN EXTREMITY
     Route: 048
     Dates: start: 20080609
  2. MULTI-VITAMINS [Concomitant]
  3. NAPROXEN [Concomitant]
  4. MAGNESIUM OXIDE [Concomitant]
  5. ALL OTHER THERAPEUTIC PRODUCTS [Concomitant]
  6. BOTOX [Concomitant]

REACTIONS (2)
  - CHEST PAIN [None]
  - HEART RATE IRREGULAR [None]
